FAERS Safety Report 19145451 (Version 4)
Quarter: 2021Q2

REPORT INFORMATION
  Report Type: Spontaneous
  Country: FR (occurrence: FR)
  Receive Date: 20210416
  Receipt Date: 20210507
  Transmission Date: 20210717
  Serious: Yes (Disabling)
  Sender: FDA-Public Use
  Company Number: FR-TEVA-2021-FR-1894833

PATIENT
  Age: 62 Year
  Sex: Male
  Weight: 79 kg

DRUGS (1)
  1. EZETIMIBE/SIMVASTATINE TEVA [Suspect]
     Active Substance: EZETIMIBE\SIMVASTATIN
     Dosage: 1 DOSAGE FORMS DAILY; 10 MG /20 MG
     Dates: start: 20200306

REACTIONS (7)
  - Product substitution issue [Unknown]
  - Tongue disorder [Recovering/Resolving]
  - Oral lichen planus [Recovering/Resolving]
  - Discomfort [Recovering/Resolving]
  - Paraesthesia oral [Recovering/Resolving]
  - Ageusia [Recovering/Resolving]
  - Dysgeusia [Recovering/Resolving]

NARRATIVE: CASE EVENT DATE: 20200311
